FAERS Safety Report 8849637 (Version 1)
Quarter: 2012Q4

REPORT INFORMATION
  Report Type: Report from Study
  Country: JP (occurrence: JP)
  Receive Date: 20121019
  Receipt Date: 20121019
  Transmission Date: 20130627
  Serious: Yes (Hospitalization)
  Sender: FDA-Public Use
  Company Number: JP-VERTEX PHARMACEUTICAL INC.-AE-2012-007782

PATIENT
  Age: 51 Year
  Sex: Male

DRUGS (11)
  1. VX-950 [Suspect]
     Indication: HEPATITIS C
     Dosage: 2250 mg, qd
     Route: 048
     Dates: start: 20120418, end: 20120522
  2. VX-950 [Suspect]
     Dosage: 1500 mg, qd
     Route: 048
     Dates: start: 20120526, end: 20120530
  3. REBETOL [Suspect]
     Indication: HEPATITIS C
     Dosage: 800 mg, qd
     Route: 048
     Dates: start: 20120418, end: 20120501
  4. REBETOL [Suspect]
     Dosage: 600 mg, qd
     Route: 048
     Dates: start: 20120502, end: 20120515
  5. REBETOL [Suspect]
     Dosage: 200 mg, qd
     Route: 048
     Dates: start: 20120516, end: 20120522
  6. REBETOL [Suspect]
     Dosage: 400 mg, qd
     Route: 048
     Dates: start: 20120523, end: 20120525
  7. REBETOL [Suspect]
     Dosage: 200 mg, qd
     Route: 048
     Dates: start: 20120526, end: 20120530
  8. REBETOL [Suspect]
     Dosage: 400 mg, qd
     Route: 048
     Dates: start: 20120531
  9. PEGINTRON                          /01543001/ [Concomitant]
     Dosage: 1.5 ?g/kg, UNK
     Route: 051
     Dates: start: 20120418
  10. NORVASC [Concomitant]
     Dosage: 2.5 mg, qd
     Route: 048
     Dates: start: 20120418
  11. OLMETEC [Concomitant]
     Dosage: 20 mg, qd
     Route: 048

REACTIONS (1)
  - Renal disorder [Recovered/Resolved]
